FAERS Safety Report 4597460-2 (Version None)
Quarter: 2005Q1

REPORT INFORMATION
  Report Type: 
  Country: None (occurrence: None)
  Receive Date: 20050303
  Receipt Date: 20050221
  Transmission Date: 20050727
  Serious: Yes (Hospitalization, Other)
  Sender: FDA-Public Use
  Company Number: US-MERCK-0502USA03010

PATIENT
  Sex: Female

DRUGS (14)
  1. INSULIN LISPRO [Concomitant]
     Route: 065
  2. LEVOTHYROXINE SODIUM [Concomitant]
     Route: 065
  3. ESCITALOPRAM OXALATE [Concomitant]
     Route: 065
  4. ESOMEPRAZOLE MAGNESIUM [Concomitant]
     Route: 065
  5. DIAZEPAM [Concomitant]
     Route: 065
  6. VERAPAMIL [Concomitant]
     Route: 065
  7. GLIMEPIRIDE [Concomitant]
     Route: 065
  8. AMITRIPTYLINE HYDROCHLORIDE [Concomitant]
     Route: 065
  9. INSULIN GLARGINE [Concomitant]
     Route: 065
  10. CLOPIDOGREL BISULFATE [Concomitant]
     Route: 065
  11. LISINOPRIL [Concomitant]
     Route: 065
  12. ASPIRIN [Concomitant]
     Route: 065
  13. DEXTROAMPHETAMINE SULFATE [Concomitant]
     Route: 065
  14. VIOXX [Suspect]
     Route: 048

REACTIONS (2)
  - CEREBROVASCULAR ACCIDENT [None]
  - INTRACRANIAL ANEURYSM [None]
